FAERS Safety Report 6403618-X (Version None)
Quarter: 2009Q4

REPORT INFORMATION
  Report Type: 
  Country: None (occurrence: None)
  Receive Date: 20091016
  Receipt Date: 20091009
  Transmission Date: 20100525
  Serious: Yes (Other)
  Sender: FDA-Public Use
  Company Number: US-JNJFOC-20090907785

PATIENT
  Age: 16 Month
  Sex: Female
  Weight: 10.89 kg

DRUGS (3)
  1. TYLENOL (CAPLET) [Suspect]
     Route: 048
  2. TYLENOL (CAPLET) [Suspect]
     Indication: PYREXIA
     Route: 048
  3. CONCENTRATED MOTRIN INFANT'S [Concomitant]
     Indication: PYREXIA
     Dosage: AS NEEDED

REACTIONS (3)
  - DRUG INEFFECTIVE [None]
  - KIDNEY INFECTION [None]
  - TRANSMISSION OF AN INFECTIOUS AGENT VIA A MEDICINAL PRODUCT [None]
